FAERS Safety Report 15633797 (Version 2)
Quarter: 2019Q1

REPORT INFORMATION
  Report Type: Spontaneous
  Country: US (occurrence: US)
  Receive Date: 20181119
  Receipt Date: 20190128
  Transmission Date: 20190417
  Serious: No
  Sender: FDA-Public Use
  Company Number: US-SA-2018SA316103

PATIENT
  Age: 21 Year
  Sex: Female

DRUGS (1)
  1. DUPIXENT [Suspect]
     Active Substance: DUPILUMAB

REACTIONS (6)
  - Eye pain [Unknown]
  - Eye swelling [Unknown]
  - Swelling face [Unknown]
  - Keratitis [Recovering/Resolving]
  - Rash [Unknown]
  - Erythema [Unknown]
